FAERS Safety Report 4598535-4 (Version None)
Quarter: 2005Q1

REPORT INFORMATION
  Report Type: 
  Country: None (occurrence: None)
  Receive Date: 20050304
  Receipt Date: 20030903
  Transmission Date: 20050727
  Serious: Yes (Hospitalization)
  Sender: FDA-Public Use
  Company Number: US-ROCHE-346300

PATIENT
  Age: 56 Year
  Sex: Male
  Weight: 79.8 kg

DRUGS (3)
  1. PEGASYS [Suspect]
     Indication: HEPATITIS C
     Dosage: THERAPY WAS STOPPED AND RESTARTED MORE THAN ONCE
     Route: 058
     Dates: start: 20030509
  2. PEGASYS [Suspect]
     Dosage: DOSAGE REGIMEN REPORTED AS: 90MG WEEKLY.
     Route: 058
     Dates: start: 20040216
  3. COPEGUS [Suspect]
     Indication: HEPATITIS C
     Route: 048
     Dates: start: 20030509

REACTIONS (14)
  - ANAEMIA [None]
  - DECREASED APPETITE [None]
  - FATIGUE [None]
  - HAEMORRHAGE [None]
  - HAEMORRHAGIC STROKE [None]
  - HEADACHE [None]
  - IMMUNE SYSTEM DISORDER [None]
  - INJURY [None]
  - INSOMNIA [None]
  - MEMORY IMPAIRMENT [None]
  - PHOTOSENSITIVITY REACTION [None]
  - PLATELET COUNT DECREASED [None]
  - SKIN LESION [None]
  - WHITE BLOOD CELL COUNT DECREASED [None]
